FAERS Safety Report 5857934-0 (Version None)
Quarter: 2008Q3

REPORT INFORMATION
  Report Type: 
  Country: None (occurrence: None)
  Receive Date: 20080826
  Receipt Date: 20080819
  Transmission Date: 20090109
  Serious: Yes (Other)
  Sender: FDA-Public Use
  Company Number: US-ASTRAZENECA-2006UW25586

PATIENT
  Age: 17148 Day
  Sex: Female
  Weight: 58.5 kg

DRUGS (16)
  1. ARIMIDEX [Suspect]
     Indication: BREAST CANCER FEMALE
     Route: 048
     Dates: start: 20060907
  2. LUPRON [Suspect]
     Dates: start: 20060901
  3. ALPRAZOLAM [Concomitant]
  4. FLORICET [Concomitant]
  5. PREGABALIN [Concomitant]
  6. ARTHROTEC [Concomitant]
  7. VENLAFAXINE HCL [Concomitant]
  8. SENNA [Concomitant]
  9. STOOL SOFTENER [Concomitant]
  10. MECLIZINE [Concomitant]
  11. AMITRIPTYLINE HCL [Concomitant]
  12. AMBIEN CR [Concomitant]
  13. BUTALBITAL [Concomitant]
  14. APAP TAB [Concomitant]
  15. CODEINE SUL TAB [Concomitant]
  16. HYDROCODONE BITARTRATE [Concomitant]

REACTIONS (20)
  - ABDOMINAL DISTENSION [None]
  - ADNEXA UTERI PAIN [None]
  - ALOPECIA [None]
  - ARTHRALGIA [None]
  - ASTHENIA [None]
  - BACK PAIN [None]
  - DEPRESSION [None]
  - FEELING COLD [None]
  - HEADACHE [None]
  - HOT FLUSH [None]
  - HYPOAESTHESIA [None]
  - ILL-DEFINED DISORDER [None]
  - MEMORY IMPAIRMENT [None]
  - MENOPAUSE [None]
  - MIGRAINE [None]
  - MOOD SWINGS [None]
  - MUSCULOSKELETAL STIFFNESS [None]
  - PAIN [None]
  - SUICIDAL IDEATION [None]
  - VOMITING [None]
